FAERS Safety Report 9877043 (Version 2)
Quarter: 2014Q1

REPORT INFORMATION
  Report Type: Spontaneous
  Country: US (occurrence: US)
  Receive Date: 20140206
  Receipt Date: 20140206
  Transmission Date: 20141002
  Serious: Yes (Death)
  Sender: FDA-Public Use
  Company Number: US-ALEXION PHARMACEUTICALS INC.-A201303435

PATIENT
  Age: 15 Year
  Sex: Male

DRUGS (2)
  1. SOLIRIS 300MG [Suspect]
     Indication: COMPLICATIONS OF BONE MARROW TRANSPLANT
     Dosage: UNK
     Dates: end: 20140130
  2. SOLIRIS 300MG [Suspect]
     Indication: OFF LABEL USE

REACTIONS (2)
  - Death [Fatal]
  - Off label use [Unknown]
